FAERS Safety Report 7839039-2 (Version None)
Quarter: 2011Q4

REPORT INFORMATION
  Report Type: 
  Country: None (occurrence: None)
  Receive Date: 20111024
  Receipt Date: 20111011
  Transmission Date: 20120403
  Serious: Yes (Other)
  Sender: FDA-Public Use
  Company Number: SA-MYLANLABS-2011S1021126

PATIENT
  Sex: Female

DRUGS (3)
  1. SOTALOL HCL [Suspect]
     Indication: TACHYCARDIA FOETAL
     Route: 048
  2. SOTALOL HCL [Suspect]
     Route: 048
  3. SOTALOL HCL [Suspect]
     Route: 048

REACTIONS (5)
  - MATERNAL EXPOSURE DURING PREGNANCY [None]
  - DIZZINESS [None]
  - CAESAREAN SECTION [None]
  - SUPRAVENTRICULAR TACHYCARDIA [None]
  - FATIGUE [None]
